FAERS Safety Report 7515189-5 (Version None)
Quarter: 2011Q2

REPORT INFORMATION
  Report Type: 
  Country: None (occurrence: None)
  Receive Date: 20110601
  Receipt Date: 20100514
  Transmission Date: 20111010
  Serious: No
  Sender: FDA-Public Use
  Company Number: US-PFIZER INC-2010061074

PATIENT
  Age: 61 Year
  Sex: Female

DRUGS (3)
  1. COMBIVENT [Concomitant]
     Indication: ASTHMA
     Dosage: UNK
     Route: 055
  2. CHANTIX [Suspect]
     Indication: SMOKING CESSATION THERAPY
     Dosage: UNK
  3. SYMBICORT [Concomitant]
     Indication: ASTHMA
     Dosage: UNK
     Route: 055

REACTIONS (5)
  - ABNORMAL DREAMS [None]
  - DRUG INEFFECTIVE [None]
  - ANXIETY [None]
  - NIGHTMARE [None]
  - IRRITABILITY [None]
